FAERS Safety Report 14913723 (Version 2)
Quarter: 2018Q2

REPORT INFORMATION
  Report Type: Spontaneous
  Country: SI (occurrence: SI)
  Receive Date: 20180518
  Receipt Date: 20180629
  Transmission Date: 20180711
  Serious: Yes (Death)
  Sender: FDA-Public Use
  Company Number: SI-GLAXOSMITHKLINE-SI2018GSK088464

PATIENT
  Age: 41 Year
  Sex: Male

DRUGS (2)
  1. REZOLSTA [Suspect]
     Active Substance: COBICISTAT\DARUNAVIR ETHANOLATE
     Indication: HIV INFECTION
     Dosage: UNK
  2. KIVEXA [Suspect]
     Active Substance: ABACAVIR SULFATE\LAMIVUDINE
     Indication: HIV INFECTION
     Dosage: UNK
     Dates: start: 2014

REACTIONS (3)
  - Pain in extremity [Unknown]
  - Feeling abnormal [Unknown]
  - Cardiac disorder [Fatal]
